FAERS Safety Report 8978009 (Version 1)
Quarter: 2012Q4

REPORT INFORMATION
  Report Type: 
  Country: CN (occurrence: CN)
  Receive Date: 20121220
  Receipt Date: 20121220
  Transmission Date: 20130627
  Serious: Yes (Other)
  Sender: FDA-Public Use
  Company Number: CN-ROCHE-1169130

PATIENT
  Sex: Female

DRUGS (5)
  1. MABTHERA [Suspect]
     Indication: LYMPHOMA
     Route: 065
     Dates: start: 20121111
  2. CYCLOPHOSPHAMIDE [Concomitant]
     Indication: LYMPHOMA
     Route: 065
     Dates: start: 20121111
  3. DOXORUBICIN [Concomitant]
     Indication: LYMPHOMA
     Route: 065
     Dates: start: 20121111
  4. VINCRISTINE [Concomitant]
     Indication: LYMPHOMA
     Route: 065
     Dates: start: 20121111
  5. PREDNISONE [Concomitant]
     Indication: LYMPHOMA
     Route: 065
     Dates: start: 20121111

REACTIONS (3)
  - Guillain-Barre syndrome [Unknown]
  - Polyneuropathy [Unknown]
  - Asthenia [Unknown]
